FAERS Safety Report 6380686-5 (Version None)
Quarter: 2009Q3

REPORT INFORMATION
  Report Type: 
  Country: None (occurrence: None)
  Receive Date: 20090929
  Receipt Date: 20090917
  Transmission Date: 20100115
  Serious: Yes (Life-Threatening)
  Sender: FDA-Public Use
  Company Number: US-ASTRAZENECA-2009SE13628

PATIENT
  Age: 78 Year
  Sex: Female
  Weight: 59 kg

DRUGS (2)
  1. BUPIVACAINE [Suspect]
     Route: 053
  2. BUPIVACAINE [Suspect]
     Dosage: 8 ML/HOUR
     Route: 053

REACTIONS (1)
  - ATRIOVENTRICULAR BLOCK COMPLETE [None]
